FAERS Safety Report 18647833 (Version 1)
Quarter: 2020Q4

REPORT INFORMATION
  Report Type: Spontaneous
  Country: FR (occurrence: FR)
  Receive Date: 20201222
  Receipt Date: 20201222
  Transmission Date: 20210114
  Serious: Yes (Hospitalization)
  Sender: FDA-Public Use
  Company Number: FR-GLAXOSMITHKLINE-FR2020249070

PATIENT
  Age: 21 Year
  Sex: Female
  Weight: 68 kg

DRUGS (4)
  1. LAMOTRIGINE. [Suspect]
     Active Substance: LAMOTRIGINE
     Indication: PRODUCT USED FOR UNKNOWN INDICATION
     Dosage: 25 MG, QD
     Route: 048
     Dates: start: 20200519, end: 20200602
  2. LAMOTRIGINE. [Suspect]
     Active Substance: LAMOTRIGINE
     Dosage: 50 MG, QD
     Route: 048
     Dates: start: 20200519, end: 20200602
  3. TRANXENE [Suspect]
     Active Substance: CLORAZEPATE DIPOTASSIUM
     Indication: ANXIETY
     Dosage: 40 MG, QD
     Route: 048
     Dates: start: 20200428, end: 20200602
  4. THERALENE (ALIMEMAZINE TARTRATE) [Suspect]
     Active Substance: TRIMEPRAZINE TARTRATE
     Indication: INSOMNIA
     Dosage: 20 MG, QD
     Route: 048
     Dates: start: 20200428, end: 20200524

REACTIONS (1)
  - Cutaneous vasculitis [Recovering/Resolving]

NARRATIVE: CASE EVENT DATE: 20200522
